FAERS Safety Report 10227720 (Version 3)
Quarter: 2014Q2

REPORT INFORMATION
  Report Type: Spontaneous
  Country: US (occurrence: None)
  Receive Date: 20140606
  Receipt Date: 20140626
  Transmission Date: 20141212
  Serious: Yes (Hospitalization)
  Sender: FDA-Public Use
  Company Number: UNT-2014-001283

PATIENT
  Age: 63 Year
  Sex: Female
  Weight: 102 kg

DRUGS (4)
  1. REMODULIN [Suspect]
     Indication: COR PULMONALE CHRONIC
     Dosage: 0.492 UG/KG/MIN
     Route: 058
     Dates: start: 20130307
  2. LETAIRIS (AMBRISENTAN) [Concomitant]
  3. SILDENAFIL (SILDENAFIL) [Concomitant]
  4. REVATIO (SILDENAFIL CITRATE) [Concomitant]

REACTIONS (5)
  - Transient ischaemic attack [None]
  - Medical device complication [None]
  - Cerebrovascular accident [None]
  - Drug dose omission [None]
  - Viral infection [None]
